FAERS Safety Report 5751035-8 (Version None)
Quarter: 2008Q2

REPORT INFORMATION
  Report Type: 
  Country: None (occurrence: None)
  Receive Date: 20080528
  Receipt Date: 20080519
  Transmission Date: 20081010
  Serious: Yes (Other)
  Sender: FDA-Public Use
  Company Number: US-JNJFOC-20080206685

PATIENT
  Sex: Female
  Weight: 69.4 kg

DRUGS (5)
  1. REMICADE [Suspect]
     Route: 042
  2. REMICADE [Suspect]
     Route: 042
  3. REMICADE [Suspect]
     Indication: RHEUMATOID ARTHRITIS
     Route: 042
  4. METHOTREXATE [Concomitant]
     Indication: DRUG USE FOR UNKNOWN INDICATION
  5. HORMONE REPLACEMENT THERAPY [Concomitant]

REACTIONS (4)
  - BACK PAIN [None]
  - CONVULSION [None]
  - INFUSION RELATED REACTION [None]
  - TREMOR [None]
